FAERS Safety Report 19409155 (Version 1)
Quarter: 2021Q2

REPORT INFORMATION
  Report Type: Spontaneous
  Country: US (occurrence: US)
  Receive Date: 20210614
  Receipt Date: 20210614
  Transmission Date: 20210717
  Serious: Yes (Hospitalization)
  Sender: FDA-Public Use
  Company Number: US-JNJFOC-20210608120

PATIENT
  Age: 38 Year
  Sex: Male

DRUGS (1)
  1. PARACETAMOL [Suspect]
     Active Substance: ACETAMINOPHEN
     Indication: PRODUCT USED FOR UNKNOWN INDICATION
     Route: 065

REACTIONS (7)
  - Electrocardiogram QT prolonged [Recovered/Resolved]
  - Intentional overdose [Unknown]
  - Aspartate aminotransferase increased [Recovered/Resolved]
  - Methaemoglobinaemia [Recovered/Resolved]
  - Alanine aminotransferase increased [Recovered/Resolved]
  - Suicide attempt [Unknown]
  - International normalised ratio increased [Recovered/Resolved]
